FAERS Safety Report 10909904 (Version 1)
Quarter: 2015Q1

REPORT INFORMATION
  Report Type: Spontaneous
  Country: US (occurrence: US)
  Receive Date: 20150312
  Receipt Date: 20150312
  Transmission Date: 20150721
  Serious: No
  Sender: FDA-Public Use
  Company Number: US-SA-2014SA134161

PATIENT
  Age: 46 Year
  Sex: Male

DRUGS (1)
  1. NASACORT ALLERGY 24HR [Suspect]
     Active Substance: TRIAMCINOLONE ACETONIDE
     Indication: HYPERSENSITIVITY
     Dosage: TAKEN FROM: MAY OR JUNE 2014?TAKEN TO: AFTER 3 DOSES?DOSE 2 SPRAYS IN EACH NOSTRIL
     Route: 045
     Dates: start: 2014

REACTIONS (4)
  - Eye swelling [Recovered/Resolved]
  - Eye discharge [Recovered/Resolved]
  - Lip swelling [Recovered/Resolved]
  - Ocular hyperaemia [Recovered/Resolved]

NARRATIVE: CASE EVENT DATE: 2014
